FAERS Safety Report 21145216 (Version 12)
Quarter: 2023Q2

REPORT INFORMATION
  Report Type: Spontaneous
  Country: GB (occurrence: GB)
  Receive Date: 20220729
  Receipt Date: 20230622
  Transmission Date: 20230722
  Serious: Yes (Life-Threatening, Hospitalization, Other)
  Sender: FDA-Public Use
  Company Number: GB-ROCHE-1671632

PATIENT
  Age: 45 Year
  Sex: Female
  Weight: 80 kg

DRUGS (85)
  1. ANASTROZOLE [Suspect]
     Active Substance: ANASTROZOLE
     Indication: Product used for unknown indication
     Dosage: 1 MILLIGRAM, ONCE A DAY
     Route: 048
     Dates: start: 20150616
  2. EXEMESTANE [Suspect]
     Active Substance: EXEMESTANE
     Indication: Breast cancer metastatic
     Dosage: 25 MILLIGRAM, ONCE A DAY
     Route: 048
     Dates: start: 20150518
  3. EXEMESTANE [Suspect]
     Active Substance: EXEMESTANE
     Indication: Metastases to bone
     Dosage: 600 MILLIGRAM (3 WEEK)
     Route: 065
     Dates: start: 20160723
  4. TAXOTERE [Suspect]
     Active Substance: DOCETAXEL
     Indication: Breast cancer metastatic
     Dosage: 120 MILLIGRAM, 3 WEEK
     Route: 042
     Dates: start: 20150804, end: 20151117
  5. TAXOTERE [Suspect]
     Active Substance: DOCETAXEL
     Dosage: 120 MILLIGRAM 3 WEEK
     Route: 042
     Dates: start: 20150808
  6. TAXOTERE [Suspect]
     Active Substance: DOCETAXEL
     Dosage: 120 MILLIGRAM 3 WEEKS
     Route: 042
     Dates: start: 20150814, end: 20151117
  7. TAXOTERE [Suspect]
     Active Substance: DOCETAXEL
     Dosage: 600 MILLIGRAM 3 WEEK
     Route: 042
     Dates: start: 20151217
  8. IBANDRONIC ACID [Suspect]
     Active Substance: IBANDRONIC ACID
     Indication: Metastases to bone
     Dosage: 50 MILLIGRAM, ONCE A DAY
     Route: 048
     Dates: start: 20150518
  9. IBANDRONIC ACID [Suspect]
     Active Substance: IBANDRONIC ACID
     Indication: Breast cancer metastatic
     Dosage: 420 MILLIGRAM, ONCE A DAY
     Route: 065
     Dates: start: 20160715
  10. BENZYDAMINE [Suspect]
     Active Substance: BENZYDAMINE
     Indication: Product used for unknown indication
     Dosage: 15 MILLIGRAM
     Route: 065
     Dates: start: 20150308, end: 20150817
  11. PERTUZUMAB [Suspect]
     Active Substance: PERTUZUMAB
     Indication: Breast cancer metastatic
     Dosage: 840 MILLIGRAM, ONCE A DAY, ONE CYCLE (LOADING DOSE)
     Route: 042
     Dates: start: 20150804, end: 20150804
  12. PERTUZUMAB [Suspect]
     Active Substance: PERTUZUMAB
     Dosage: 840 MILLIGRAM EVERY 3 WEEK
     Route: 042
     Dates: start: 20160623, end: 20160623
  13. PERTUZUMAB [Suspect]
     Active Substance: PERTUZUMAB
     Dosage: 420 MILLIGRAM, MAINTAINANCE DOSE
     Route: 042
     Dates: start: 20151217, end: 20160308
  14. PERTUZUMAB [Suspect]
     Active Substance: PERTUZUMAB
     Dosage: 420 MILLIGRAM, 3 WEEK, MAINTAINANCE DOSE
     Route: 042
     Dates: start: 20150825, end: 20151117
  15. PERTUZUMAB [Suspect]
     Active Substance: PERTUZUMAB
     Dosage: 840 MILLIGRAM, ONCE A DAY, LOADING DOSE
     Route: 042
     Dates: start: 20150102, end: 20150102
  16. PERTUZUMAB [Suspect]
     Active Substance: PERTUZUMAB
     Dosage: 420 MILLIGRAM, ONCE A DAY, MAINTENANCE DOSE
     Route: 042
     Dates: start: 20160715
  17. SYNVISC [Suspect]
     Active Substance: HYLAN G-F 20
     Indication: Product used for unknown indication
     Dosage: 600 MILLIGRAM (3 WEEK)
     Route: 065
     Dates: start: 20160623
  18. SYNVISC [Suspect]
     Active Substance: HYLAN G-F 20
     Dosage: 600 MILLIGRAM 3 WEEK
     Route: 065
     Dates: start: 20150825
  19. SYNVISC [Suspect]
     Active Substance: HYLAN G-F 20
     Dosage: UNK
     Route: 065
     Dates: start: 20160308
  20. TRASTUZUMAB [Suspect]
     Active Substance: TRASTUZUMAB
     Indication: Breast cancer metastatic
     Dosage: 600 MILLIGRAM EVERY 3 WEEKS
     Route: 058
  21. TRASTUZUMAB [Suspect]
     Active Substance: TRASTUZUMAB
     Dosage: 483 MILLIGRAM, ONCE A DAY, LOADING DOSE
     Route: 042
     Dates: start: 20150803, end: 20150803
  22. TRASTUZUMAB [Suspect]
     Active Substance: TRASTUZUMAB
     Dosage: 600 MILLIGRAM 3 WEEK
     Route: 042
     Dates: start: 20150825, end: 20151117
  23. TRASTUZUMAB [Suspect]
     Active Substance: TRASTUZUMAB
     Dosage: 600 MILLIGRAM, ONCE A DAY, LOADING DOSE
     Route: 042
     Dates: start: 20151217, end: 20160308
  24. TRASTUZUMAB [Suspect]
     Active Substance: TRASTUZUMAB
     Dosage: 600 MILLIGRAM EVERY 3 WEEKS
     Route: 042
     Dates: start: 20160308, end: 20160308
  25. TRASTUZUMAB [Suspect]
     Active Substance: TRASTUZUMAB
     Dosage: 1800 MILLIGRAM, 1 WEEK
     Route: 042
     Dates: start: 20160623
  26. TRASTUZUMAB [Suspect]
     Active Substance: TRASTUZUMAB
     Dosage: 600 MILLIGRAM EVERY 3 WEEKS
     Route: 042
     Dates: start: 20160723
  27. TRASTUZUMAB [Suspect]
     Active Substance: TRASTUZUMAB
     Dosage: 600 MILLIGRAM EVERY 3 WEEKS
     Route: 042
  28. TRASTUZUMAB [Suspect]
     Active Substance: TRASTUZUMAB
     Dosage: 600 MILLIGRAM EVERY 3 WEEKS,DATE OF MOST RECENT DOSE (600MG ) OF TRASTUZUMAB: 23/JUN/2016
     Route: 042
  29. TRASTUZUMAB [Suspect]
     Active Substance: TRASTUZUMAB
     Dosage: 588 MILLIGRAM, ONCE A DAY
     Route: 042
     Dates: start: 20150105, end: 20150105
  30. TRASTUZUMAB [Suspect]
     Active Substance: TRASTUZUMAB
     Dosage: 441 MILLIGRAM, ONCE A DAY
     Route: 042
     Dates: start: 20150130, end: 20161003
  31. HYALURONIDASE (HUMAN RECOMBINANT)\TRASTUZUMAB [Suspect]
     Active Substance: HYALURONIDASE (HUMAN RECOMBINANT)\TRASTUZUMAB
     Indication: Breast cancer metastatic
     Dosage: UNK, STOPPED
     Route: 058
  32. HYALURONIDASE (HUMAN RECOMBINANT)\TRASTUZUMAB [Suspect]
     Active Substance: HYALURONIDASE (HUMAN RECOMBINANT)\TRASTUZUMAB
     Dosage: 600 MILLIGRAM, 3 TIMES IN A WEEK, MAINTAINANCE DOSE
     Route: 058
  33. HYALURONIDASE (HUMAN RECOMBINANT)\TRASTUZUMAB [Suspect]
     Active Substance: HYALURONIDASE (HUMAN RECOMBINANT)\TRASTUZUMAB
     Dosage: 600 MILLIGRAM, 3 TIMES IN A WEEK
     Route: 058
  34. HYALURONIDASE (HUMAN RECOMBINANT)\TRASTUZUMAB [Suspect]
     Active Substance: HYALURONIDASE (HUMAN RECOMBINANT)\TRASTUZUMAB
     Dosage: 600 MILLIGRAM, 3 TIMES IN A WEEK, STOPPED
     Route: 042
     Dates: start: 20160308, end: 20160308
  35. SODIUM HYALURONATE [Suspect]
     Active Substance: HYALURONATE SODIUM
     Indication: Product used for unknown indication
     Dosage: 600 MILLIGRAM, 3 WEEK
     Route: 065
     Dates: start: 20160523
  36. SODIUM HYALURONATE [Suspect]
     Active Substance: HYALURONATE SODIUM
     Dosage: UNK, ONCE A DAY
     Route: 065
     Dates: start: 20160308, end: 20160308
  37. SODIUM HYALURONATE [Suspect]
     Active Substance: HYALURONATE SODIUM
     Dosage: 600 MILLIGRAM, 3 WEEK
     Route: 065
     Dates: start: 20150825, end: 20151117
  38. HYALURONIDASE (HUMAN RECOMBINANT) [Suspect]
     Active Substance: HYALURONIDASE (HUMAN RECOMBINANT)
     Indication: Breast cancer metastatic
     Dosage: 600 MILLIGRAM, 3 WEEK
     Route: 042
     Dates: start: 20150825, end: 20151117
  39. HYALURONIDASE (HUMAN RECOMBINANT) [Suspect]
     Active Substance: HYALURONIDASE (HUMAN RECOMBINANT)
     Dosage: 600 MILLIGRAM 2 WEEK
     Route: 042
     Dates: start: 20160623
  40. HYALURONIDASE (HUMAN RECOMBINANT) [Suspect]
     Active Substance: HYALURONIDASE (HUMAN RECOMBINANT)
     Dosage: 600 MILLIGRAM, 3 WEEK
     Route: 042
     Dates: start: 20160308, end: 20160308
  41. HYALURONIDASE (HUMAN RECOMBINANT) [Suspect]
     Active Substance: HYALURONIDASE (HUMAN RECOMBINANT)
     Dosage: 600 MILLIGRAM 3 WEEK
     Route: 058
     Dates: start: 20160723
  42. DOCETAXEL [Suspect]
     Active Substance: DOCETAXEL
     Indication: Breast cancer metastatic
     Dosage: 120 MILLIGRAM, EVERY WEEK
     Route: 042
     Dates: start: 20150804, end: 20151117
  43. DOCETAXEL [Suspect]
     Active Substance: DOCETAXEL
     Dosage: 120 MILLIGRAM
     Route: 042
  44. DOCETAXEL [Suspect]
     Active Substance: DOCETAXEL
     Dosage: 120 MILLIGRAM, Q3WK
     Route: 042
  45. DOCETAXEL [Suspect]
     Active Substance: DOCETAXEL
     Dosage: 600 MILLIGRAM
     Route: 042
     Dates: start: 20151217, end: 20160308
  46. DOCETAXEL [Suspect]
     Active Substance: DOCETAXEL
     Dosage: 140 MILLIGRAM, EVERY WEEK
     Route: 042
     Dates: start: 20150106, end: 20150424
  47. HYALURONIDASE [Suspect]
     Active Substance: HYALURONIDASE
     Indication: Metastases to bone
     Dosage: 600 MILLIGRAM, UNK
     Route: 058
     Dates: start: 20160723
  48. HYALURONIDASE [Suspect]
     Active Substance: HYALURONIDASE
     Dosage: 600 MILLIGRAM, 1 WEEK
     Route: 058
     Dates: start: 20150825, end: 20151117
  49. HYALURONIDASE [Suspect]
     Active Substance: HYALURONIDASE
     Dosage: 600 MILLIGRAM, 3 WEEKS
     Route: 058
     Dates: start: 20160623
  50. HYALURONIDASE [Suspect]
     Active Substance: HYALURONIDASE
     Dosage: UNK
     Route: 058
     Dates: start: 20160308
  51. HYALURONIDASE [Suspect]
     Active Substance: HYALURONIDASE
     Dosage: 50 MILLIGRAM, ONCE A DAY
     Route: 065
     Dates: start: 20150518
  52. BISOPROLOL [Concomitant]
     Active Substance: BISOPROLOL
     Indication: Product used for unknown indication
     Dosage: 1000 MILLIGRAM, ONCE A DAY
     Route: 065
     Dates: start: 20160908
  53. CIPROFLOXACIN [Concomitant]
     Active Substance: CIPROFLOXACIN
     Indication: Vascular device infection
     Dosage: 1000 MILLIGRAM, ONCE A DAY
     Route: 048
     Dates: start: 20151210, end: 20151215
  54. CIPROFLOXACIN [Concomitant]
     Active Substance: CIPROFLOXACIN
     Dosage: 8 MILLIGRAM
     Route: 065
     Dates: start: 20150803
  55. CIPROFLOXACIN [Concomitant]
     Active Substance: CIPROFLOXACIN
     Dosage: 1000 MILLIGRAM, ONCE A DAY
     Route: 048
     Dates: start: 20160908
  56. AMOXICILLIN\CLAVULANATE POTASSIUM [Concomitant]
     Active Substance: AMOXICILLIN\CLAVULANATE POTASSIUM
     Indication: Vascular device infection
     Dosage: 120 MILLIGRAM
     Route: 058
     Dates: start: 20160127
  57. AMOXICILLIN\CLAVULANATE POTASSIUM [Concomitant]
     Active Substance: AMOXICILLIN\CLAVULANATE POTASSIUM
     Dosage: 1875 MILLIGRAM, 3 TIMES A DAY
     Route: 048
     Dates: start: 20160915
  58. CALCIUM [Concomitant]
     Active Substance: CALCIUM
     Indication: Product used for unknown indication
     Dosage: UNK
     Route: 065
  59. DEXAMETHASONE [Concomitant]
     Active Substance: DEXAMETHASONE
     Indication: Product used for unknown indication
     Dosage: 8 MILLIGRAM, FOR 3 DAYS EVERY 3 WEEKS
     Route: 048
     Dates: start: 20150803
  60. XGEVA [Concomitant]
     Active Substance: DENOSUMAB
     Indication: Product used for unknown indication
     Dosage: 8 MILLIGRAM, 3 DAYS  EVERY 3 WEEKS
     Route: 058
     Dates: start: 20150803
  61. XGEVA [Concomitant]
     Active Substance: DENOSUMAB
     Dosage: 120 MILLIGRAM, 1 MONTH
     Route: 058
     Dates: start: 20160127, end: 201802
  62. XGEVA [Concomitant]
     Active Substance: DENOSUMAB
     Dosage: 24 MILLIGRAM, 3 DAYS  EVERY 3 WEEKS
     Route: 058
     Dates: start: 20150803
  63. BENZYDAMINE [Concomitant]
     Active Substance: BENZYDAMINE
     Indication: Gingival swelling
     Dosage: 30 MILLILITER, ONCE A DAY
     Route: 048
     Dates: start: 20150308
  64. BENZYDAMINE [Concomitant]
     Active Substance: BENZYDAMINE
     Indication: Mucosal inflammation
     Dosage: 15 MILLIGRAM, ONCE A DAY
     Route: 065
     Dates: start: 20150308
  65. BENZYDAMINE [Concomitant]
     Active Substance: BENZYDAMINE
     Indication: Metastases to bone
     Dosage: 15 MILLIGRAM, FOUR TIMES/DAY
     Route: 048
     Dates: start: 20150308, end: 20150817
  66. BENZYDAMINE [Concomitant]
     Active Substance: BENZYDAMINE
     Dosage: 15 MILLIGRAM, 3 TIMES A DAY
     Route: 048
     Dates: start: 20150308, end: 20150817
  67. BENZYDAMINE [Concomitant]
     Active Substance: BENZYDAMINE
     Dosage: 15 MILLIGRAM, ONCE A DAY
     Route: 065
     Dates: start: 201508
  68. BENZYDAMINE [Concomitant]
     Active Substance: BENZYDAMINE
     Dosage: 15 MILLIGRAM, 3 TIMES A DAY
     Route: 048
     Dates: start: 201508
  69. BENZYDAMINE [Concomitant]
     Active Substance: BENZYDAMINE
     Dosage: UNK
     Route: 048
     Dates: start: 201508
  70. BENZYDAMINE [Concomitant]
     Active Substance: BENZYDAMINE
     Dosage: 60 MILLILITER, ONCE A DAY
     Route: 048
     Dates: start: 20150803, end: 20150817
  71. GENTAMICIN [Concomitant]
     Active Substance: GENTAMICIN
     Indication: Device related infection
     Dosage: UNK
     Route: 065
     Dates: start: 20151130
  72. IRON [Concomitant]
     Active Substance: IRON
     Indication: Serum ferritin decreased
     Dosage: 3 GRAM, ONCE A DAY
     Route: 042
     Dates: start: 20160918
  73. IRON [Concomitant]
     Active Substance: IRON
     Dosage: UNK
     Route: 048
  74. MEROPENEM [Concomitant]
     Active Substance: MEROPENEM
     Indication: Device related infection
     Dosage: 3 GRAM, ONCE A DAY
     Route: 042
     Dates: start: 20160918
  75. MEROPENEM [Concomitant]
     Active Substance: MEROPENEM
     Dosage: 2000 MILLIGRAM, ONCE A DAY
     Route: 065
     Dates: start: 20141211, end: 20141224
  76. ACETAMINOPHEN [Concomitant]
     Active Substance: ACETAMINOPHEN
     Indication: Device related infection
     Dosage: 1 GRAM, 3 TIMES A DAY
     Route: 048
  77. ACETAMINOPHEN [Concomitant]
     Active Substance: ACETAMINOPHEN
     Dosage: 2000 MILLIGRAM, ONCE A DAY
     Route: 065
     Dates: start: 20141211
  78. ACETAMINOPHEN [Concomitant]
     Active Substance: ACETAMINOPHEN
     Dosage: 500 MILLIGRAM, ONCE A DAY
     Route: 048
     Dates: start: 20141211, end: 20141224
  79. ACETAMINOPHEN [Concomitant]
     Active Substance: ACETAMINOPHEN
     Dosage: 4 GRAM, ONCE A DAY
     Route: 048
     Dates: start: 20160916
  80. RAMIPRIL [Concomitant]
     Active Substance: RAMIPRIL
     Indication: Ejection fraction decreased
     Dosage: 10 MILLIGRAM
     Route: 048
     Dates: start: 201603
  81. PIPERACILLIN SODIUM\TAZOBACTAM SODIUM [Concomitant]
     Active Substance: PIPERACILLIN SODIUM\TAZOBACTAM SODIUM
     Indication: Device related infection
     Dosage: 600 MILLIGRAM 3 WEEKS
     Route: 058
     Dates: start: 20151130, end: 20151209
  82. PIPERACILLIN SODIUM\TAZOBACTAM SODIUM [Concomitant]
     Active Substance: PIPERACILLIN SODIUM\TAZOBACTAM SODIUM
     Dosage: 600 MILLIGRAM, ONCE A DAY 3 WEEKS
     Route: 042
     Dates: start: 20160723
  83. DENOSUMAB [Concomitant]
     Active Substance: DENOSUMAB
     Indication: Product used for unknown indication
     Dosage: 120 MILLIGRAM (MONTHLY)
     Route: 058
     Dates: start: 20160127, end: 201802
  84. DENOSUMAB [Concomitant]
     Active Substance: DENOSUMAB
     Dosage: 8 MILLIGRAM(3 DAYS  EVERY 3 WEEKS )
     Route: 058
     Dates: start: 20150803
  85. BENZYDAMINE HYDROCHLORIDE [Concomitant]
     Active Substance: BENZYDAMINE HYDROCHLORIDE
     Indication: Product used for unknown indication
     Dosage: 15 MILLIGRAM, ONCE A DAY
     Route: 065
     Dates: start: 20150315

REACTIONS (19)
  - Device related infection [Recovered/Resolved]
  - Sepsis [Recovered/Resolved]
  - Anaemia [Recovered/Resolved]
  - Ejection fraction decreased [Recovered/Resolved]
  - Lymphoedema [Recovered/Resolved]
  - Rash [Recovered/Resolved]
  - Hot flush [Recovered/Resolved]
  - Gingival swelling [Recovered/Resolved]
  - Alopecia [Recovered/Resolved]
  - Diarrhoea [Recovered/Resolved]
  - Epistaxis [Recovered/Resolved]
  - Fatigue [Recovered/Resolved]
  - Influenza like illness [Recovered/Resolved]
  - Gastrooesophageal reflux disease [Recovered/Resolved]
  - Mucosal inflammation [Recovered/Resolved]
  - Vascular device infection [Recovered/Resolved]
  - Off label use [Unknown]
  - Osteonecrosis of jaw [Not Recovered/Not Resolved]
  - Vascular device infection [Recovered/Resolved]

NARRATIVE: CASE EVENT DATE: 20150801
